FAERS Safety Report 7809013-0 (Version None)
Quarter: 2011Q4

REPORT INFORMATION
  Report Type: 
  Country: None (occurrence: None)
  Receive Date: 20111012
  Receipt Date: 20111012
  Transmission Date: 20120403
  Serious: Yes (Hospitalization)
  Sender: FDA-Public Use
  Company Number: None

PATIENT
  Age: 21 Year
  Sex: Male
  Weight: 65.77 kg

DRUGS (1)
  1. ZYPREXA ZYDIS [Suspect]
     Dosage: 15MG
     Route: 048
     Dates: start: 20110926, end: 20111011

REACTIONS (7)
  - WHITE BLOOD CELL COUNT INCREASED [None]
  - HEART RATE INCREASED [None]
  - BLOOD PRESSURE INCREASED [None]
  - BLOOD CREATINE PHOSPHOKINASE INCREASED [None]
  - MYALGIA [None]
  - DRY MOUTH [None]
  - NEUTROPHIL COUNT INCREASED [None]
